FAERS Safety Report 21592659 (Version 1)
Quarter: 2022Q4

REPORT INFORMATION
  Report Type: Spontaneous
  Country: US (occurrence: None)
  Receive Date: 20221111
  Receipt Date: 20221111
  Transmission Date: 20230113
  Serious: Yes (Other)
  Sender: FDA-Public Use
  Company Number: None

PATIENT
  Sex: Female

DRUGS (22)
  1. ENBREL [Suspect]
     Active Substance: ETANERCEPT
     Indication: Rheumatoid arthritis
     Dosage: 50 MG/ML SUBCUTANEOUS??INJECT 50 MG UNDER THE SKIN (SUBCUTANEOUSLY) ONCE A WEEK.?
     Route: 058
     Dates: start: 20150911
  2. ENBREL [Suspect]
     Active Substance: ETANERCEPT
     Dosage: FREQUENCY : WEEKLY;?
     Route: 058
  3. ALLEGRA [Concomitant]
     Active Substance: FEXOFENADINE HYDROCHLORIDE
  4. ALVESCO AER [Concomitant]
  5. AMLODIPINE [Concomitant]
  6. AZITHROMYCIN [Concomitant]
     Active Substance: AZITHROMYCIN
  7. BD SHARPS MIS [Concomitant]
  8. BENICAR [Concomitant]
     Active Substance: OLMESARTAN MEDOXOMIL
  9. CALCIUM [Concomitant]
     Active Substance: CALCIUM
  10. CEPHALEXIN [Concomitant]
     Active Substance: CEPHALEXIN
  11. CLOTRIM/BETA CRE [Concomitant]
  12. DEPO-MEDROL [Concomitant]
     Active Substance: METHYLPREDNISOLONE ACETATE
  13. DEPO-PROVERA [Concomitant]
     Active Substance: MEDROXYPROGESTERONE ACETATE
  14. FEXOFENADINE [Concomitant]
     Active Substance: FEXOFENADINE HYDROCHLORIDE
  15. GABAPENTIN [Concomitant]
     Active Substance: GABAPENTIN
  16. OLMESA MEDOX [Concomitant]
  17. PREDNISONE [Concomitant]
     Active Substance: PREDNISONE
  18. RESTASIS EMU [Concomitant]
  19. SINGULAIR [Concomitant]
  20. VEMTOLIN HFA AER [Concomitant]
  21. XYZAL [Concomitant]
     Active Substance: LEVOCETIRIZINE DIHYDROCHLORIDE
  22. ZYRTEC ALLGY [Concomitant]

REACTIONS (2)
  - Therapy interrupted [None]
  - Surgery [None]
